FAERS Safety Report 8845127 (Version 2)
Quarter: 2012Q4

REPORT INFORMATION
  Report Type: 
  Country: US (occurrence: US)
  Receive Date: 20121017
  Receipt Date: 20121112
  Transmission Date: 20130627
  Serious: Yes (Other)
  Sender: FDA-Public Use
  Company Number: US-PFIZER INC-2012253960

PATIENT
  Age: 67 Year
  Sex: Male
  Weight: 82.54 kg

DRUGS (2)
  1. VIAGRA [Suspect]
     Indication: ERECTILE DYSFUNCTION
     Dosage: UNK, as needed
     Route: 048
  2. VIAGRA [Suspect]
     Dosage: 100 mg, as needed
     Route: 048

REACTIONS (1)
  - Benign prostatic hyperplasia [Recovered/Resolved]
